FAERS Safety Report 7457586-2 (Version None)
Quarter: 2011Q2

REPORT INFORMATION
  Report Type: 
  Country: None (occurrence: None)
  Receive Date: 20110504
  Receipt Date: 20110422
  Transmission Date: 20111010
  Serious: Yes (Other)
  Sender: FDA-Public Use
  Company Number: NL-BAXTER-2011BH013222

PATIENT
  Age: 85 Year
  Sex: Male

DRUGS (1)
  1. TISSEEL VH KIT [Suspect]
     Indication: ABDOMINAL OPERATION
     Route: 065
     Dates: start: 20101108

REACTIONS (1)
  - HAEMATOMA [None]
